FAERS Safety Report 14592437 (Version 1)
Quarter: 2018Q1

REPORT INFORMATION
  Report Type: Report from Study
  Country: ES (occurrence: ES)
  Receive Date: 20180302
  Receipt Date: 20180302
  Transmission Date: 20180509
  Serious: Yes (Death, Hospitalization)
  Sender: FDA-Public Use
  Company Number: ES-PFIZER INC-2018088338

PATIENT
  Age: 85 Year
  Sex: Female

DRUGS (9)
  1. PIPERACILLIN/TAZOBACTAM [Suspect]
     Active Substance: PIPERACILLIN SODIUM\TAZOBACTAM SODIUM
     Dosage: 4 G, 4X/DAY (EACH 6H)
     Dates: start: 20170312, end: 20170314
  2. OMEPRAZOL [Suspect]
     Active Substance: OMEPRAZOLE
     Dosage: 20 MG, DAILY
     Dates: start: 20170313, end: 20170314
  3. PARACETAMOL [Suspect]
     Active Substance: ACETAMINOPHEN
     Dosage: 1 G, 3X/DAY (EACH 8H)
     Dates: start: 20170312, end: 20170314
  4. FENTANILO /00174601/ [Concomitant]
     Active Substance: FENTANYL
     Dosage: 1 DF, UNK
     Route: 062
     Dates: start: 20170312, end: 20170316
  5. BEMIPARINA [Concomitant]
     Active Substance: BEMIPARIN SODIUM
     Dosage: 7500 IU, DAILY
     Dates: start: 20170312, end: 20170313
  6. QUETIAPINE. [Concomitant]
     Active Substance: QUETIAPINE
     Dosage: 50 MG, 2X/DAY (EACH 12H)
     Dates: start: 20170312, end: 20170313
  7. PREGABALIN. [Concomitant]
     Active Substance: PREGABALIN
     Dosage: 75 MG, 2X/DAY (EACH 12H)
     Dates: start: 20170312, end: 20170313
  8. RISPERIDONE. [Concomitant]
     Active Substance: RISPERIDONE
     Dosage: 0.5 MG, AS NEEDED
     Dates: start: 20170312, end: 20170313
  9. OLANZAPINE. [Suspect]
     Active Substance: OLANZAPINE
     Dosage: 2.5 MG, AS NEEDED
     Dates: start: 20170312, end: 20170314

REACTIONS (3)
  - Hepatitis [Fatal]
  - Acute hepatic failure [Fatal]
  - Coagulopathy [Fatal]

NARRATIVE: CASE EVENT DATE: 20170313
